FAERS Safety Report 8248300-1 (Version None)
Quarter: 2012Q1

REPORT INFORMATION
  Report Type: 
  Country: None (occurrence: None)
  Receive Date: 20120330
  Receipt Date: 20120322
  Transmission Date: 20120608
  Serious: Yes (Hospitalization, Disabling)
  Sender: FDA-Public Use
  Company Number: US-CELGENEUS-163-21880-12030524

PATIENT
  Sex: Male
  Weight: 80.812 kg

DRUGS (5)
  1. METOPROLOL SUCCINATE [Concomitant]
     Dosage: 50 MILLIGRAM
     Route: 065
  2. PROTONIX [Concomitant]
     Dosage: 40 MILLIGRAM
     Route: 065
  3. REVLIMID [Suspect]
     Indication: MULTIPLE MYELOMA
     Dosage: 5 MILLIGRAM
     Route: 048
     Dates: start: 20120112, end: 20120212
  4. ASPIRIN [Concomitant]
     Dosage: 325 MILLIGRAM
     Route: 048
  5. LIPITOR [Concomitant]
     Dosage: 20 MILLIGRAM
     Route: 065

REACTIONS (6)
  - CHOLECYSTITIS ACUTE [None]
  - GASTROOESOPHAGITIS [None]
  - WEIGHT DECREASED [None]
  - VOMITING [None]
  - EATING DISORDER [None]
  - DEHYDRATION [None]
